FAERS Safety Report 8246960-2 (Version None)
Quarter: 2012Q1

REPORT INFORMATION
  Report Type: 
  Country: None (occurrence: None)
  Receive Date: 20120330
  Receipt Date: 20120323
  Transmission Date: 20120608
  Serious: Yes (Death)
  Sender: FDA-Public Use
  Company Number: FR-ROCHE-1028789

PATIENT
  Age: 70 Year
  Sex: Male

DRUGS (4)
  1. ROCEPHIN [Suspect]
     Indication: INFECTION PROPHYLAXIS
     Route: 042
     Dates: start: 20070101
  2. ARTICAINE [Concomitant]
  3. MIDAZOLAM [Concomitant]
     Indication: SEDATION
     Route: 042
  4. MEPERIDINE HCL [Concomitant]
     Indication: SEDATION
     Route: 042

REACTIONS (1)
  - CARDIAC ARREST [None]
